FAERS Safety Report 6758264-5 (Version None)
Quarter: 2010Q2

REPORT INFORMATION
  Report Type: 
  Country: None (occurrence: None)
  Receive Date: 20100524
  Receipt Date: 20100412
  Transmission Date: 20101027
  Serious: No
  Sender: FDA-Public Use
  Company Number: 010081

PATIENT
  Sex: Female
  Weight: 97.5 kg

DRUGS (4)
  1. CIMZIA [Suspect]
     Indication: CROHN'S DISEASE
     Dosage: 400 MG 1X/4 MONTHS SUBCUTANEOUS
     Route: 058
     Dates: start: 20100101
  2. MIRENA [Concomitant]
  3. BENADRYL [Concomitant]
  4. ACETAMINOPHEN [Concomitant]

REACTIONS (1)
  - MENORRHAGIA [None]
